FAERS Safety Report 5571860-6 (Version None)
Quarter: 2007Q4

REPORT INFORMATION
  Report Type: 
  Country: None (occurrence: None)
  Receive Date: 20071221
  Receipt Date: 20071219
  Transmission Date: 20080405
  Serious: Yes (Hospitalization)
  Sender: FDA-Public Use
  Company Number: ESWYE642804MAY05

PATIENT
  Sex: Male
  Weight: 82.8 kg

DRUGS (10)
  1. RAPAMUNE [Suspect]
     Indication: PROPHYLAXIS AGAINST TRANSPLANT REJECTION
     Dosage: 5 MG EVERY
     Route: 048
     Dates: start: 20050404, end: 20050412
  2. CELLCEPT [Suspect]
     Indication: PROPHYLAXIS AGAINST TRANSPLANT REJECTION
     Dates: start: 20050404, end: 20050413
  3. CELLCEPT [Suspect]
     Dates: start: 20050502
  4. PREDNISONE [Suspect]
     Indication: PROPHYLAXIS AGAINST TRANSPLANT REJECTION
     Dates: start: 20050430
  5. DIAZEPAM [Concomitant]
     Indication: ANXIETY
  6. ALLOPURINOL [Concomitant]
     Indication: HYPERURICAEMIA
     Dates: start: 20050429
  7. CALCIUM CARBONATE [Concomitant]
     Indication: HYPOCALCAEMIA
     Dates: start: 20050429
  8. SEPTRIN [Concomitant]
     Indication: PROPHYLAXIS
  9. ZENEPAX [Suspect]
     Indication: PROPHYLAXIS AGAINST TRANSPLANT REJECTION
  10. GEMFIBROZIL [Concomitant]
     Indication: HYPERTRIGLYCERIDAEMIA
     Dates: start: 20050422

REACTIONS (1)
  - UROGENITAL FISTULA [None]
